FAERS Safety Report 6302675-9 (Version None)
Quarter: 2009Q3

REPORT INFORMATION
  Report Type: 
  Country: None (occurrence: None)
  Receive Date: 20090810
  Receipt Date: 20090730
  Transmission Date: 20100115
  Serious: Yes (Hospitalization, Other)
  Sender: FDA-Public Use
  Company Number: DE-BAYER-200927357GPV

PATIENT
  Age: 64 Year
  Sex: Male
  Weight: 73 kg

DRUGS (4)
  1. FLUDARABINE PHOSPHATE [Suspect]
     Indication: CHRONIC LYMPHOCYTIC LEUKAEMIA
     Dosage: AS USED: 45 MG
     Route: 042
     Dates: start: 20090608, end: 20090703
  2. RITUXIMAB [Suspect]
     Indication: CHRONIC LYMPHOCYTIC LEUKAEMIA
     Dosage: AS USED: 900 MG
     Route: 042
     Dates: start: 20090604, end: 20090701
  3. CYCLOPHOSPHAMIDE [Suspect]
     Indication: CHRONIC LYMPHOCYTIC LEUKAEMIA
     Dosage: AS USED: 450 MG
     Route: 042
     Dates: start: 20090608, end: 20090703
  4. L-THYROXIN [Concomitant]
     Indication: AUTOIMMUNE THYROIDITIS

REACTIONS (5)
  - FEBRILE INFECTION [None]
  - FLUID INTAKE REDUCED [None]
  - HICCUPS [None]
  - INSOMNIA [None]
  - SYNCOPE [None]
